FAERS Safety Report 18542119 (Version 1)
Quarter: 2020Q4

REPORT INFORMATION
  Report Type: Spontaneous
  Country: BE (occurrence: BE)
  Receive Date: 20201125
  Receipt Date: 20201125
  Transmission Date: 20210114
  Serious: Yes (Hospitalization, Other)
  Sender: FDA-Public Use
  Company Number: BE-LUPIN PHARMACEUTICALS INC.-2020-09275

PATIENT
  Age: 57 Year
  Sex: Male

DRUGS (4)
  1. METHYLPREDNISOLONE. [Suspect]
     Active Substance: METHYLPREDNISOLONE
     Indication: MYASTHENIA GRAVIS
     Dosage: 64 MILLIGRAM, UNK
     Route: 048
  2. PYRIDOSTIGMINE [Suspect]
     Active Substance: PYRIDOSTIGMINE
     Dosage: UNK (DOSE DECREASED)
     Route: 065
  3. METHYLPREDNISOLONE. [Suspect]
     Active Substance: METHYLPREDNISOLONE
     Dosage: 58 MILLIGRAM, UNK
     Route: 048
  4. PYRIDOSTIGMINE [Suspect]
     Active Substance: PYRIDOSTIGMINE
     Indication: MYASTHENIA GRAVIS
     Dosage: 720 MILLIGRAM (STARTED AT INCREASING DOSAGE REACHING 720MG)
     Route: 065

REACTIONS (8)
  - Abdominal pain [Unknown]
  - Cushingoid [Recovering/Resolving]
  - Myopathy [Recovering/Resolving]
  - Corneal abrasion [Recovering/Resolving]
  - Exophthalmos [Recovering/Resolving]
  - Weight increased [Recovering/Resolving]
  - Gastrointestinal disorder [Unknown]
  - Eye luxation [Recovering/Resolving]
